FAERS Safety Report 7378677-0 (Version None)
Quarter: 2011Q1

REPORT INFORMATION
  Report Type: 
  Country: None (occurrence: None)
  Receive Date: 20110328
  Receipt Date: 20110323
  Transmission Date: 20110831
  Serious: Yes (Other)
  Sender: FDA-Public Use
  Company Number: AU-PFIZER INC-2011064997

PATIENT
  Age: 16 Year
  Sex: Male

DRUGS (2)
  1. LYRICA [Suspect]
     Indication: PAIN
     Dosage: 75 MG, 2X/DAY
     Dates: start: 20091201, end: 20100215
  2. LYRICA [Suspect]
     Dosage: 4 CAPSULES A DAY
     Dates: start: 20100101, end: 20100702

REACTIONS (1)
  - MENTAL IMPAIRMENT [None]
